FAERS Safety Report 25689426 (Version 1)
Quarter: 2025Q3

REPORT INFORMATION
  Report Type: Spontaneous
  Country: US (occurrence: US)
  Receive Date: 20250818
  Receipt Date: 20250818
  Transmission Date: 20251020
  Serious: Yes (Hospitalization)
  Sender: MOLNLYCKE
  Company Number: US-Molnlycke-2182684

PATIENT
  Age: 74 Year
  Sex: Male

DRUGS (1)
  1. HIBICLENS [Suspect]
     Active Substance: CHLORHEXIDINE GLUCONATE
     Indication: Wrong product administered
     Dates: start: 20250605, end: 20250605

REACTIONS (6)
  - Vomiting [Recovering/Resolving]
  - Accidental exposure to product [Recovered/Resolved]
  - Product dispensing error [Recovered/Resolved]
  - Nausea [Recovering/Resolving]
  - Throat irritation [Recovering/Resolving]
  - Diarrhoea [Recovering/Resolving]

NARRATIVE: CASE EVENT DATE: 20250605
